FAERS Safety Report 6160010-3 (Version None)
Quarter: 2009Q2

REPORT INFORMATION
  Report Type: 
  Country: None (occurrence: None)
  Receive Date: 20090416
  Receipt Date: 20090403
  Transmission Date: 20091009
  Serious: Yes (Hospitalization)
  Sender: FDA-Public Use
  Company Number: 2009-194425-NL

PATIENT
  Age: 48 Year
  Sex: Female

DRUGS (5)
  1. MIRTAZAPINE [Suspect]
     Indication: DEPRESSION
     Dosage: 15 MG QD
     Dates: start: 20071011, end: 20071018
  2. THIAMINE HYDROCHLORIDE [Concomitant]
  3. CANDESARTAN CILEXETIL [Concomitant]
  4. CITALOPRAM HYDROBROMIDE [Concomitant]
  5. CLOMETHIAZOLE EDISILATE [Concomitant]

REACTIONS (2)
  - EYE SWELLING [None]
  - SWELLING FACE [None]
